FAERS Safety Report 6528567-8 (Version None)
Quarter: 2009Q4

REPORT INFORMATION
  Report Type: 
  Country: None (occurrence: None)
  Receive Date: 20091222
  Receipt Date: 20090829
  Transmission Date: 20100525
  Serious: No
  Sender: FDA-Public Use
  Company Number: ALL1-2009-02511

PATIENT
  Age: 22 Year
  Sex: Male
  Weight: 113.4 kg

DRUGS (3)
  1. VYVANSE [Suspect]
     Indication: ATTENTION DEFICIT/HYPERACTIVITY DISORDER
     Dosage: 50 MG, 1X/DAY;QD, ORAL
     Route: 048
     Dates: start: 20090801
  2. INSULIN (INSULIN) SOLUTION FOR INJECTION [Concomitant]
  3. METFORMIN (METFORMIN) TABLET [Concomitant]

REACTIONS (8)
  - DEPRESSION [None]
  - FATIGUE [None]
  - FEELING ABNORMAL [None]
  - HUNGER [None]
  - HYPERSOMNIA [None]
  - IRRITABILITY [None]
  - MALAISE [None]
  - MOOD SWINGS [None]
